FAERS Safety Report 9008675 (Version 1)
Quarter: 2013Q1

REPORT INFORMATION
  Report Type: Report from Study
  Country: FR (occurrence: FR)
  Receive Date: 20130111
  Receipt Date: 20130111
  Transmission Date: 20140127
  Serious: Yes (Other)
  Sender: FDA-Public Use
  Company Number: FR-UCBSA-074557

PATIENT
  Age: 58 Year
  Sex: Female
  Weight: 57 kg

DRUGS (9)
  1. CIMZIA [Suspect]
     Indication: RHEUMATOID ARTHRITIS
     Route: 058
     Dates: start: 20120820, end: 2012
  2. CIMZIA [Suspect]
     Indication: RHEUMATOID ARTHRITIS
     Route: 058
     Dates: start: 2012
  3. METOJECT [Concomitant]
     Indication: RHEUMATOID ARTHRITIS
     Route: 058
     Dates: start: 20090129
  4. KETOPROFENE LP [Concomitant]
     Indication: RHEUMATOID ARTHRITIS
     Dosage: 200MG DAILY
     Route: 048
  5. CORTANCYL [Concomitant]
     Indication: RHEUMATOID ARTHRITIS
     Dosage: DAILY DOSE: 9MG
     Route: 048
     Dates: start: 1996
  6. ATACAND [Concomitant]
     Indication: HYPERTENSION
     Dosage: DAILY DOSE: 4MG
     Route: 048
     Dates: start: 2005
  7. SPIRONOLACTONE [Concomitant]
     Indication: HYPERTENSION
     Dosage: DAILY DOSE: 50MG
     Route: 048
     Dates: start: 2005
  8. SPECIAFOLDINE [Concomitant]
     Indication: ADVERSE DRUG REACTION
     Route: 048
  9. ACTONEL [Concomitant]
     Indication: OSTEOPOROSIS PROPHYLAXIS
     Route: 048

REACTIONS (2)
  - Oral herpes [Not Recovered/Not Resolved]
  - Pruritus [Not Recovered/Not Resolved]
